FAERS Safety Report 9548731 (Version 1)
Quarter: 2013Q3

REPORT INFORMATION
  Report Type: Spontaneous
  Country: US (occurrence: None)
  Receive Date: 20130923
  Receipt Date: 20130923
  Transmission Date: 20140515
  Serious: Yes (Other)
  Sender: FDA-Public Use
  Company Number: None

PATIENT
  Age: 61 Year
  Sex: Female
  Weight: 68.04 kg

DRUGS (2)
  1. RECLAST [Suspect]
     Indication: OSTEOGENESIS IMPERFECTA
     Dosage: INFUSION
     Route: 042
  2. RECLAST [Suspect]
     Indication: BONE LOSS
     Dosage: INFUSION
     Route: 042

REACTIONS (1)
  - Jaw operation [None]
